FAERS Safety Report 21520571 (Version 1)
Quarter: 2022Q4

REPORT INFORMATION
  Report Type: Spontaneous
  Country: ES (occurrence: ES)
  Receive Date: 20221028
  Receipt Date: 20221028
  Transmission Date: 20230112
  Serious: Yes (Other)
  Sender: FDA-Public Use
  Company Number: ES-FreseniusKabi-FK202214627

PATIENT
  Age: 56 Year
  Sex: Female

DRUGS (6)
  1. CARBOPLATIN [Suspect]
     Active Substance: CARBOPLATIN
     Indication: Lung adenocarcinoma stage IV
     Dosage: FIRST-LINE TREATMENT
  2. CARBOPLATIN [Suspect]
     Active Substance: CARBOPLATIN
     Dosage: SHE RECEIVED THE SECOND CYCLE OF TREATMENT
  3. PEMETREXED [Suspect]
     Active Substance: PEMETREXED
     Indication: Lung adenocarcinoma stage IV
     Dosage: FIRST-LINE TREATMENT
  4. PEMETREXED [Suspect]
     Active Substance: PEMETREXED
     Dosage: SHE RECEIVED THE SECOND CYCLE OF TREATMENT
  5. PEMBROLIZUMAB [Suspect]
     Active Substance: PEMBROLIZUMAB
     Indication: Lung adenocarcinoma stage IV
     Dosage: FIRST-LINE TREATMENT
  6. PEMBROLIZUMAB [Suspect]
     Active Substance: PEMBROLIZUMAB
     Dosage: SHE RECEIVED THE SECOND CYCLE OF TREATMENT

REACTIONS (1)
  - Posterior reversible encephalopathy syndrome [Unknown]
